FAERS Safety Report 5642569-5 (Version None)
Quarter: 2008Q1

REPORT INFORMATION
  Report Type: 
  Country: None (occurrence: None)
  Receive Date: 20080227
  Receipt Date: 20080227
  Transmission Date: 20080703
  Serious: Yes (Hospitalization)
  Sender: FDA-Public Use
  Company Number: None

PATIENT
  Sex: Male
  Weight: 57.5 kg

DRUGS (8)
  1. SORAFENIB [Suspect]
     Indication: PROSTATE CANCER
     Dosage: 200MG QD PO
     Route: 048
     Dates: start: 20071010
  2. LUPRON [Concomitant]
  3. WARFARIN SODIUM [Concomitant]
  4. PREVACID [Concomitant]
  5. LASIX [Concomitant]
  6. ALLEGRA D 24 HOUR [Concomitant]
  7. SENOKOT [Concomitant]
  8. NORVASC [Concomitant]

REACTIONS (1)
  - PAIN [None]
